FAERS Safety Report 4635388-X (Version None)
Quarter: 2005Q2

REPORT INFORMATION
  Report Type: 
  Country: None (occurrence: None)
  Receive Date: 20050411
  Receipt Date: 20050328
  Transmission Date: 20051028
  Serious: Yes (Other)
  Sender: FDA-Public Use
  Company Number: 2005002315

PATIENT
  Sex: Female
  Weight: 82.5547 kg

DRUGS (10)
  1. CELEBREX [Suspect]
     Indication: OSTEOARTHRITIS
     Dosage: 400 MG (200 MG, 2 IN 1 D), ORAL
     Route: 048
  2. ETODOLAC [Suspect]
     Indication: OSTEOARTHRITIS
     Dosage: 800 MG (400 MG, 2 IN 1 D),ORAL
     Route: 048
     Dates: start: 20050101
  3. TRAMADOL HCL [Concomitant]
  4. ALL OTHER THERAPEUTIC PRODUCTS (ALL OTHER THERAPEUTIC PRODUCTS) [Concomitant]
  5. MECLOZINE (MECLOZINE) [Concomitant]
  6. PROVELLA-14 (ESTROGENS CONJUGATED, MEDROXYPROGESTERONE ACETATE) [Concomitant]
  7. PRAMIPEXOLE (PRAMIPEXOLE) [Concomitant]
  8. ANTIHYPERTENSIVES (ANTIHYPERTENSIVES) [Concomitant]
  9. ASPIRIN [Concomitant]
  10. VITAMINS (VITAMINS) [Concomitant]

REACTIONS (14)
  - ARTHRALGIA [None]
  - ARTHRITIS [None]
  - BLOOD PRESSURE ABNORMAL [None]
  - CONDITION AGGRAVATED [None]
  - CORONARY ARTERY OCCLUSION [None]
  - CORONARY ARTERY SURGERY [None]
  - DIZZINESS [None]
  - DRUG EFFECT DECREASED [None]
  - MYOCARDIAL INFARCTION [None]
  - NEOPLASM MALIGNANT [None]
  - PAIN [None]
  - PHARMACEUTICAL PRODUCT COMPLAINT [None]
  - TREATMENT NONCOMPLIANCE [None]
  - VERTIGO [None]
